FAERS Safety Report 22750413 (Version 2)
Quarter: 2024Q2

REPORT INFORMATION
  Report Type: Spontaneous
  Country: US (occurrence: US)
  Receive Date: 20230726
  Receipt Date: 20240412
  Transmission Date: 20240716
  Serious: Yes (Hospitalization, Other)
  Sender: FDA-Public Use
  Company Number: US-JNJFOC-20220558884

PATIENT
  Age: 45 Year
  Sex: Female

DRUGS (6)
  1. LOVENOX [Suspect]
     Active Substance: ENOXAPARIN SODIUM
     Indication: Product used for unknown indication
     Dosage: 80 MG, QD
     Route: 058
  2. APIXABAN [Suspect]
     Active Substance: APIXABAN
     Indication: Product used for unknown indication
     Dosage: UNK
     Route: 065
  3. XARELTO [Suspect]
     Active Substance: RIVAROXABAN
     Indication: Product used for unknown indication
     Dosage: UNK
     Route: 048
  4. XARELTO [Suspect]
     Active Substance: RIVAROXABAN
     Dosage: UNK
     Route: 048
  5. XARELTO [Suspect]
     Active Substance: RIVAROXABAN
     Dosage: UNK
     Route: 048
  6. FRAGMIN [Suspect]
     Active Substance: DALTEPARIN SODIUM
     Indication: Product used for unknown indication
     Dosage: 12500 IU, QD
     Route: 058

REACTIONS (10)
  - Multiple sclerosis [Unknown]
  - Cerebrovascular accident [Unknown]
  - Antiphospholipid syndrome [Unknown]
  - Memory impairment [Unknown]
  - Seizure [Unknown]
  - Pulmonary embolism [Unknown]
  - Urinary incontinence [Unknown]
  - Anaphylactic shock [Unknown]
  - Anaphylactic reaction [Unknown]
  - Haematemesis [Unknown]

NARRATIVE: CASE EVENT DATE: 20090101
